FAERS Safety Report 6689984-9 (Version None)
Quarter: 2010Q2

REPORT INFORMATION
  Report Type: 
  Country: None (occurrence: None)
  Receive Date: 20100421
  Receipt Date: 20100414
  Transmission Date: 20101027
  Serious: Yes (Death, Other)
  Sender: FDA-Public Use
  Company Number: JP-BAYER-201011901BYL

PATIENT
  Age: 73 Year
  Sex: Male
  Weight: 67 kg

DRUGS (2)
  1. NEXAVAR [Suspect]
     Indication: HEPATIC NEOPLASM MALIGNANT
     Dosage: UNIT DOSE: 200 MG
     Route: 048
     Dates: start: 20100216, end: 20100314
  2. ALDACTONE [Concomitant]
     Indication: ASCITES
     Route: 048
     Dates: start: 20100315, end: 20100408

REACTIONS (3)
  - HEPATIC FUNCTION ABNORMAL [None]
  - HEPATIC NEOPLASM MALIGNANT [None]
  - MALIGNANT NEOPLASM PROGRESSION [None]
